FAERS Safety Report 8867793 (Version 1)
Quarter: 2012Q4

REPORT INFORMATION
  Report Type: 
  Country: US (occurrence: US)
  Receive Date: 20121026
  Receipt Date: 20121026
  Transmission Date: 20130627
  Serious: No
  Sender: FDA-Public Use
  Company Number: US-AMGEN-USASP2012041383

PATIENT
  Age: 48 Year
  Sex: Female
  Weight: 83.9 kg

DRUGS (18)
  1. ENBREL [Suspect]
     Indication: PRODUCT USED FOR UNKNOWN INDICATION
     Dosage: 50 mg, every three days
     Route: 058
  2. CYMBALTA [Concomitant]
     Dosage: 20 mg, UNK
  3. RELPAX [Concomitant]
     Dosage: 20 mg, UNK
  4. VOLTAREN                           /00372301/ [Concomitant]
     Dosage: 1 %, UNK
  5. LYRICA [Concomitant]
     Dosage: 100 mg, UNK
  6. TRAZODONE [Concomitant]
     Dosage: 50 mg, UNK
  7. METOCLOPRAM [Concomitant]
     Dosage: 10 mg, UNK
  8. TIZANIDINE [Concomitant]
     Dosage: 2 mg, UNK
  9. ACYCLOVIR                          /00587301/ [Concomitant]
     Dosage: 200 mg, UNK
  10. CLOBETASOL E [Concomitant]
     Dosage: 0.05 %, UNK
  11. DIAZEPAM [Concomitant]
     Dosage: 2 mg, UNK
  12. BISCODYL [Concomitant]
     Dosage: 5 mg, UNK
  13. OXYCODONE WITH APAP [Concomitant]
     Dosage: 5/325 mg, UNK
  14. VITAMIN D3 [Concomitant]
     Dosage: 5000 unit, UNK
  15. MULTIVITAMIN                       /00097801/ [Concomitant]
     Dosage: 5000 unit, UNK
  16. FOLIC ACID [Concomitant]
     Dosage: UNK
  17. COQ-10 [Concomitant]
     Dosage: 100 mg, UNK
  18. FUROSEMIDE [Concomitant]
     Dosage: 20 mg, UNK

REACTIONS (5)
  - Arthralgia [Unknown]
  - Dry mouth [Unknown]
  - Tooth loss [Unknown]
  - Fall [Unknown]
  - Drug ineffective [Unknown]
